FAERS Safety Report 24857047 (Version 1)
Quarter: 2025Q1

REPORT INFORMATION
  Report Type: Spontaneous
  Country: US (occurrence: US)
  Receive Date: 20250117
  Receipt Date: 20250117
  Transmission Date: 20250408
  Serious: No
  Sender: VIIV
  Company Number: US-ViiV Healthcare-120376

PATIENT
  Age: 68 Year
  Sex: Male

DRUGS (3)
  1. CABENUVA [Suspect]
     Active Substance: CABOTEGRAVIR\RILPIVIRINE
     Indication: Product used for unknown indication
     Route: 058
     Dates: start: 20241221
  2. CABENUVA [Suspect]
     Active Substance: CABOTEGRAVIR\RILPIVIRINE
  3. CABENUVA [Suspect]
     Active Substance: CABOTEGRAVIR\RILPIVIRINE

REACTIONS (8)
  - Flank pain [Unknown]
  - Swelling [Unknown]
  - Skin warm [Unknown]
  - Haematoma [Recovering/Resolving]
  - Seroma [Recovering/Resolving]
  - Inflammation [Unknown]
  - Product administered at inappropriate site [Unknown]
  - Product use issue [Unknown]
